FAERS Safety Report 19656450 (Version 1)
Quarter: 2021Q3

REPORT INFORMATION
  Report Type: Spontaneous
  Country: NL (occurrence: NL)
  Receive Date: 20210804
  Receipt Date: 20210804
  Transmission Date: 20211014
  Serious: Yes (Other)
  Sender: FDA-Public Use
  Company Number: NL-TEVA-2021-NL-1938886

PATIENT
  Age: 53 Year
  Sex: Female
  Weight: 115 kg

DRUGS (7)
  1. METHADON TABLET  5MG / BRAND NAME NOT SPECIFIED [Concomitant]
     Dosage: 5X5MG; THERAPY START DATE :THERAPY END DATE:ASKU
  2. PREGABALINE CAPSULE 150MG / BRAND NAME NOT SPECIFIED [Suspect]
     Active Substance: PREGABALIN
     Indication: PAIN
     Dosage: 450 MILLIGRAM DAILY; 3X A DAYTHERAPY END DATE :ASKU
     Dates: start: 201901
  3. ALPRAZOLAM TABLET MGA 1MG / XANAX RETARD TABLET MGA 1MG [Concomitant]
     Dosage: 2X1MG RETARD; THERAPY START DATE :THERAPY END DATE :ASKU
  4. OMEPRAZOL TABLET MSR 40MG / BRAND NAME NOT SPECIFIED [Concomitant]
     Dosage: 40 MGTHERAPY START DATE :THERAPY END DATE :ASKU
  5. MORFINE TABLET AFBOUW ? NON?CURRENT DRUG / BRAND NAME NOT SPECIFIED [Concomitant]
     Dosage: 4X5MG THERAPY START DATE :THERAPY END DATE :ASKU
  6. MACROGOL/ZOUTEN PDR V DRANK (MOVIC/MOLAX/LAXT/GEN) / MOVICOLON POEDER [Concomitant]
     Dosage: POWDER FOR DRINK:FOR BEVERAGE IN SACHETTHERAPY START DATE :THERAPY END DATE :ASKU
  7. MORFINE TABLET MGA  10MG (HCL) / BRAND NAME NOT SPECIFIED [Concomitant]
     Dosage: 10 MG (MILLIGRAM)THERAPY START DATE:THERAPY END DATE :ASKU

REACTIONS (4)
  - Pulmonary oedema [Not Recovered/Not Resolved]
  - Weight increased [Not Recovered/Not Resolved]
  - Respiratory tract infection [Not Recovered/Not Resolved]
  - Dyspnoea [Not Recovered/Not Resolved]

NARRATIVE: CASE EVENT DATE: 20191113
